FAERS Safety Report 9655365 (Version 2)
Quarter: 2013Q4

REPORT INFORMATION
  Report Type: Spontaneous
  Country: US (occurrence: US)
  Receive Date: 20131029
  Receipt Date: 20131029
  Transmission Date: 20140711
  Serious: No
  Sender: FDA-Public Use
  Company Number: US-PURDUE-USA-2012-0088147

PATIENT
  Sex: Male
  Weight: 77.1 kg

DRUGS (1)
  1. OXYCONTIN (NDA 22-272) [Suspect]
     Indication: INTERVERTEBRAL DISC DEGENERATION
     Dosage: 80 MG, UNK

REACTIONS (3)
  - Breakthrough pain [Unknown]
  - Inadequate analgesia [Unknown]
  - Drug ineffective [Unknown]
